FAERS Safety Report 19476972 (Version 1)
Quarter: 2021Q2

REPORT INFORMATION
  Report Type: Spontaneous
  Country: US (occurrence: US)
  Receive Date: 20210630
  Receipt Date: 20210630
  Transmission Date: 20210717
  Serious: No
  Sender: FDA-Public Use
  Company Number: US-BAYER-2021-166153

PATIENT

DRUGS (2)
  1. ALEVE [Suspect]
     Active Substance: NAPROXEN SODIUM
     Indication: SINUSITIS
  2. ALEVE [Suspect]
     Active Substance: NAPROXEN SODIUM
     Indication: CERVICOGENIC HEADACHE
     Dosage: UNK

REACTIONS (1)
  - Drug effective for unapproved indication [Unknown]
